FAERS Safety Report 5222844-9 (Version None)
Quarter: 2007Q1

REPORT INFORMATION
  Report Type: 
  Country: None (occurrence: None)
  Receive Date: 20070129
  Receipt Date: 20070118
  Transmission Date: 20070707
  Serious: Yes (Disabling)
  Sender: FDA-Public Use
  Company Number: CZ-GLAXOSMITHKLINE-B0455794A

PATIENT
  Age: 32 Year
  Sex: Male

DRUGS (4)
  1. AUGMENTIN '125' [Suspect]
     Dosage: 2TAB TWICE PER DAY
     Route: 048
     Dates: start: 20061210, end: 20061214
  2. CLARINASE [Concomitant]
  3. MUCOSOLVAN [Concomitant]
  4. NASAL DROPS [Concomitant]

REACTIONS (3)
  - DERMATITIS ALLERGIC [None]
  - RASH MACULO-PAPULAR [None]
  - TOXIC SKIN ERUPTION [None]
